FAERS Safety Report 11736872 (Version 1)
Quarter: 2015Q4

REPORT INFORMATION
  Report Type: Spontaneous
  Country: US (occurrence: US)
  Receive Date: 20151113
  Receipt Date: 20151113
  Transmission Date: 20160304
  Serious: No
  Sender: FDA-Public Use
  Company Number: US-JNJFOC-20151017330

PATIENT
  Sex: Female

DRUGS (5)
  1. TYLENOL [Concomitant]
     Active Substance: ACETAMINOPHEN
     Indication: PAIN
     Route: 065
  2. IMODIUM MULTI-SYMPTOM RELIEF [Suspect]
     Active Substance: DIMETHICONE\LOPERAMIDE HYDROCHLORIDE
     Route: 048
  3. VITAMINE D [Concomitant]
     Indication: PERNICIOUS ANAEMIA
     Route: 065
  4. IMODIUM MULTI-SYMPTOM RELIEF [Suspect]
     Active Substance: DIMETHICONE\LOPERAMIDE HYDROCHLORIDE
     Indication: DIARRHOEA
     Dosage: 1/2 CAPLET
     Route: 048
     Dates: start: 20151020, end: 20151020
  5. VITAMIN B12 [Concomitant]
     Active Substance: CYANOCOBALAMIN
     Indication: VITAMIN SUPPLEMENTATION
     Route: 065

REACTIONS (4)
  - Incorrect dose administered [Unknown]
  - Somnolence [Recovered/Resolved]
  - Inappropriate schedule of drug administration [Unknown]
  - Wrong technique in product usage process [Unknown]

NARRATIVE: CASE EVENT DATE: 20151020
